FAERS Safety Report 7071523-4 (Version None)
Quarter: 2010Q4

REPORT INFORMATION
  Report Type: 
  Country: None (occurrence: None)
  Receive Date: 20101029
  Receipt Date: 20090916
  Transmission Date: 20110411
  Serious: No
  Sender: FDA-Public Use
  Company Number: A0807682A

PATIENT
  Age: 83 Year
  Sex: Female

DRUGS (8)
  1. ADVAIR DISKUS 100/50 [Suspect]
     Indication: ASTHMA
     Route: 055
  2. DIOVAN [Concomitant]
  3. PROAIR HFA [Concomitant]
  4. NASONEX [Concomitant]
  5. GLYBURIDE [Concomitant]
  6. LIPITOR [Concomitant]
  7. DILTIAZEM [Concomitant]
  8. UNKNOWN EYE MEDICATION [Concomitant]
     Route: 047

REACTIONS (2)
  - DYSPNOEA EXERTIONAL [None]
  - HEART RATE INCREASED [None]
